FAERS Safety Report 17396271 (Version 2)
Quarter: 2020Q1

REPORT INFORMATION
  Report Type: Spontaneous
  Country: US (occurrence: US)
  Receive Date: 20200210
  Receipt Date: 20200313
  Transmission Date: 20200409
  Serious: Yes (Other)
  Sender: FDA-Public Use
  Company Number: US-CELGENEUS-USA-20200200064

PATIENT
  Sex: Male

DRUGS (1)
  1. THALOMID [Suspect]
     Active Substance: THALIDOMIDE
     Indication: HEAD AND NECK CANCER
     Dosage: 100 MILLIGRAM
     Route: 048
     Dates: start: 20170717, end: 20200123

REACTIONS (1)
  - Malignant neoplasm progression [Unknown]
